FAERS Safety Report 11540465 (Version 1)
Quarter: 2015Q3

REPORT INFORMATION
  Report Type: Spontaneous
  Country: US (occurrence: US)
  Receive Date: 20150923
  Receipt Date: 20150923
  Transmission Date: 20151125
  Serious: No
  Sender: FDA-Public Use
  Company Number: US-BEH-2014047155

PATIENT
  Sex: Female
  Weight: 72 kg

DRUGS (22)
  1. CELLCEPT 500 MG TABLET [Concomitant]
  2. PREDNISONE 5 MG TABLET [Concomitant]
  3. ACETAMINOPHEN. [Concomitant]
     Active Substance: ACETAMINOPHEN
  4. DEPO-PROVERA 150 MG/ML SYRN [Concomitant]
  5. LEUCOVORIN CALCIUM 5 MG TABLET [Concomitant]
  6. DEXMETHYLPHENIDATE 10 MG TAB [Concomitant]
  7. HYDROXYCHLOROQUINE 200 MG TAB [Concomitant]
  8. PRIVIGEN [Suspect]
     Active Substance: HUMAN IMMUNOGLOBULIN G
     Indication: DERMATOMYOSITIS
     Route: 042
  9. HEPARIN 10 UNITS/ML [Concomitant]
  10. ZOLOFT 50 MG TABLET [Concomitant]
  11. CETIRIZINE HCL 10 MG TABLET [Concomitant]
  12. DIPHENHYDRAMINE. [Concomitant]
     Active Substance: DIPHENHYDRAMINE
  13. ADVIL 200 MG CAPLET [Concomitant]
  14. LMX [Concomitant]
     Active Substance: LIDOCAINE
  15. FLUOCINONIDE 0.05% OINTMENT [Concomitant]
  16. DESONIDE 0.05% [Concomitant]
  17. CALCIUM CARBONATE 650 MG TAB [Concomitant]
  18. EPIPEN AUTOINJECTOR [Concomitant]
  19. METHOTREXATE 2.5 MG TABLET [Concomitant]
  20. COMPLETE MULTIVITAMIN TAB [Concomitant]
  21. PRIVIGEN [Suspect]
     Active Substance: HUMAN IMMUNOGLOBULIN G
     Indication: POLYMYOSITIS
     Route: 042
  22. SODIUM CHLORIDE 0.9% [Concomitant]
     Active Substance: SODIUM CHLORIDE

REACTIONS (5)
  - Vomiting [Unknown]
  - Headache [Unknown]
  - Palpitations [Unknown]
  - Dizziness [Unknown]
  - Nausea [Unknown]
